FAERS Safety Report 9436206 (Version 1)
Quarter: 2013Q3

REPORT INFORMATION
  Report Type: Report from Study
  Country: TH (occurrence: TH)
  Receive Date: 20130801
  Receipt Date: 20130801
  Transmission Date: 20140515
  Serious: Yes (Death, Other)
  Sender: FDA-Public Use
  Company Number: TH-UCBSA-093822

PATIENT
  Age: 20 Year
  Sex: Female

DRUGS (12)
  1. LEVETIRACETAM [Suspect]
     Indication: STATUS EPILEPTICUS
     Dosage: LOADING DOSE: 1500 MG
     Route: 042
  2. LEVETIRACETAM [Suspect]
     Indication: STATUS EPILEPTICUS
     Dosage: MAINTENANCE DOSE: 2000 MG
     Route: 042
  3. DIAZEPAM [Concomitant]
  4. DIAZEPAM [Concomitant]
  5. VALPROIC ACID [Concomitant]
  6. PHENYTOIN [Concomitant]
  7. PROPOFOL [Concomitant]
  8. TOPIRAMATE [Concomitant]
  9. PHENOBARBITAL [Concomitant]
  10. ATRACURIUM [Concomitant]
  11. CEFTAZIDIME [Concomitant]
  12. METHYLPREDNISOLONE [Concomitant]

REACTIONS (2)
  - Cerebrovascular accident [Fatal]
  - Drug ineffective for unapproved indication [Unknown]
